FAERS Safety Report 8479125-X (Version None)
Quarter: 2012Q2

REPORT INFORMATION
  Report Type: 
  Country: None (occurrence: None)
  Receive Date: 20120629
  Receipt Date: 20120620
  Transmission Date: 20120825
  Serious: Yes (Hospitalization)
  Sender: FDA-Public Use
  Company Number: DE-BRISTOL-MYERS SQUIBB COMPANY-16712945

PATIENT
  Age: 56 Year
  Sex: Male
  Weight: 59 kg

DRUGS (5)
  1. DOCETAXEL [Suspect]
     Indication: HEAD AND NECK CANCER
     Dates: start: 20120531
  2. FLUOROURACIL [Suspect]
     Indication: HEAD AND NECK CANCER
     Dates: start: 20120531
  3. DEXAMETHASONE [Suspect]
     Indication: NAUSEA
     Dosage: 1DF=12 UNITS NOS
     Dates: start: 20120531, end: 20120531
  4. CETUXIMAB [Suspect]
     Indication: HEAD AND NECK CANCER
     Dates: start: 20120531
  5. CISPLATIN [Suspect]
     Indication: HEAD AND NECK CANCER
     Dates: start: 20120531

REACTIONS (1)
  - SYNCOPE [None]
